FAERS Safety Report 14410661 (Version 1)
Quarter: 2018Q1

REPORT INFORMATION
  Report Type: Report from Study
  Country: CR (occurrence: CR)
  Receive Date: 20180119
  Receipt Date: 20180119
  Transmission Date: 20180509
  Serious: Yes (Hospitalization)
  Sender: FDA-Public Use
  Company Number: PHHY2018CR006076

PATIENT
  Sex: Female

DRUGS (1)
  1. DIOVAN [Suspect]
     Active Substance: VALSARTAN
     Indication: PRODUCT USED FOR UNKNOWN INDICATION
     Dosage: 0.5 DF (350 MG), QD
     Route: 065

REACTIONS (9)
  - Peripheral swelling [Unknown]
  - Tachycardia [Unknown]
  - Cardiac failure [Unknown]
  - Pulmonary oedema [Unknown]
  - Respiratory failure [Unknown]
  - Blood pressure fluctuation [None]
  - Oedema [Unknown]
  - Blood pressure inadequately controlled [Unknown]
  - Wrong technique in product usage process [Unknown]
